FAERS Safety Report 4317310-9 (Version None)
Quarter: 2004Q1

REPORT INFORMATION
  Report Type: 
  Country: None (occurrence: None)
  Receive Date: 20040302
  Receipt Date: 20040211
  Transmission Date: 20041129
  Serious: Yes (Other)
  Sender: FDA-Public Use
  Company Number: 2004SA000016

PATIENT
  Age: 63 Year
  Sex: Female
  Weight: 111 kg

DRUGS (7)
  1. THYMOGLOBULIN [Suspect]
     Indication: PROPHYLAXIS AGAINST TRANSPLANT REJECTION
     Dosage: 1.5 MG/KG; DAILY; INTRAVENOUS
     Route: 042
     Dates: start: 20030624, end: 20030625
  2. CELLCEPT [Concomitant]
  3. AZATHIOPRINE [Concomitant]
  4. PREDNISONE [Concomitant]
  5. BACTRIM [Concomitant]
  6. MYCELEX [Concomitant]
  7. PROCARDIA XL [Concomitant]

REACTIONS (4)
  - BLOODY DISCHARGE [None]
  - HAEMATOCRIT DECREASED [None]
  - HYPOTENSION [None]
  - POST PROCEDURAL DISCHARGE [None]
